FAERS Safety Report 12342882 (Version 1)
Quarter: 2016Q2

REPORT INFORMATION
  Report Type: Spontaneous
  Country: US (occurrence: US)
  Receive Date: 20160506
  Receipt Date: 20160506
  Transmission Date: 20160815
  Serious: No
  Sender: FDA-Public Use
  Company Number: GXBR2015US001216

PATIENT
  Sex: Female
  Weight: 90.7 kg

DRUGS (4)
  1. WATER PILLS [Concomitant]
     Active Substance: UNSPECIFIED INGREDIENT
     Indication: FLUID RETENTION
     Dosage: UNK DF, UNK
  2. LOSARTAN. [Concomitant]
     Active Substance: LOSARTAN
     Indication: BLOOD PRESSURE MEASUREMENT
     Dosage: 1 DF, QD
     Dates: start: 2009
  3. LANSOPRAZOLE. [Suspect]
     Active Substance: LANSOPRAZOLE
     Indication: GASTROOESOPHAGEAL REFLUX DISEASE
     Dosage: 30 MG, BID4SDO
     Route: 048
  4. THYROID [Concomitant]
     Active Substance: LEVOTHYROXINE\LIOTHYRONINE
     Indication: THYROID THERAPY
     Dosage: UNK DF, UNK

REACTIONS (2)
  - Dysphagia [Recovered/Resolved]
  - Stomatitis [Recovering/Resolving]
